FAERS Safety Report 8997943 (Version 1)
Quarter: 2013Q1

REPORT INFORMATION
  Report Type: Spontaneous
  Country: US (occurrence: US)
  Receive Date: 20130104
  Receipt Date: 20130104
  Transmission Date: 20140127
  Serious: Yes (Hospitalization)
  Sender: FDA-Public Use
  Company Number: US-BANPHARM-20120500

PATIENT
  Sex: Female

DRUGS (1)
  1. IBUPROFEN/DIPHENHYDRAMINE HYDROCHLORIDE [Suspect]
     Route: 048

REACTIONS (1)
  - Hospitalisation [Unknown]
